FAERS Safety Report 13725644 (Version 2)
Quarter: 2017Q3

REPORT INFORMATION
  Report Type: Spontaneous
  Country: FR (occurrence: FR)
  Receive Date: 20170706
  Receipt Date: 20170801
  Transmission Date: 20171127
  Serious: Yes (Other)
  Sender: FDA-Public Use
  Company Number: FR-BAYER-2017-128942

PATIENT
  Age: 35 Year
  Sex: Female

DRUGS (1)
  1. MIRENA [Suspect]
     Active Substance: LEVONORGESTREL
     Indication: CONTRACEPTION
     Dosage: 20 MCG/24HR, CONT
     Route: 015
     Dates: start: 20150511, end: 20170616

REACTIONS (17)
  - Arthralgia [Recovering/Resolving]
  - Abdominal distension [Recovering/Resolving]
  - Weight increased [Recovering/Resolving]
  - Condition aggravated [Recovering/Resolving]
  - Anxiety [Recovering/Resolving]
  - Tinnitus [Recovering/Resolving]
  - Affective disorder [Recovering/Resolving]
  - Acne [None]
  - Vertigo [Recovering/Resolving]
  - Hirsutism [None]
  - Depression [Recovering/Resolving]
  - Uterine contractions abnormal [Recovering/Resolving]
  - Agoraphobia [None]
  - Fatigue [Recovering/Resolving]
  - Loss of libido [Recovering/Resolving]
  - Sleep disorder [Recovering/Resolving]
  - Vision blurred [None]

NARRATIVE: CASE EVENT DATE: 201506
